FAERS Safety Report 13163957 (Version 1)
Quarter: 2017Q1

REPORT INFORMATION
  Report Type: Spontaneous
  Country: US (occurrence: US)
  Receive Date: 20170130
  Receipt Date: 20170130
  Transmission Date: 20170428
  Serious: Yes (Other)
  Sender: FDA-Public Use
  Company Number: US-SA-2017SA013222

PATIENT
  Age: 71 Year
  Sex: Female

DRUGS (5)
  1. TOUJEO [Concomitant]
     Active Substance: INSULIN GLARGINE
  2. HUMULIN N [Concomitant]
     Active Substance: INSULIN HUMAN
  3. LANTUS [Suspect]
     Active Substance: INSULIN GLARGINE
     Indication: TYPE 1 DIABETES MELLITUS
     Route: 065
     Dates: start: 2002
  4. LANTUS [Suspect]
     Active Substance: INSULIN GLARGINE
     Indication: TYPE 1 DIABETES MELLITUS
     Dosage: DOSE:45 UNIT(S)
     Route: 065
  5. INSULIN, REGULAR [Concomitant]
     Active Substance: INSULIN NOS

REACTIONS (9)
  - Cardiovascular disorder [Unknown]
  - Visual impairment [Unknown]
  - Staphylococcal infection [Unknown]
  - Blood glucose increased [Unknown]
  - Localised infection [Unknown]
  - Arthritis [Unknown]
  - Drug ineffective [Unknown]
  - Pancreatic disorder [Unknown]
  - Blood glucose decreased [Unknown]
